FAERS Safety Report 4545323-0 (Version None)
Quarter: 2005Q1

REPORT INFORMATION
  Report Type: 
  Country: None (occurrence: None)
  Receive Date: 20041222
  Receipt Date: 20040708
  Transmission Date: 20050727
  Serious: Yes (Life-Threatening, Hospitalization, Other)
  Sender: FDA-Public Use
  Company Number: USA031151405

PATIENT
  Age: 82 Year
  Sex: Female
  Weight: 81 kg

DRUGS (5)
  1. HUMALOG [Suspect]
     Indication: DIABETES MELLITUS
     Dosage: 83 U DAY
     Dates: start: 20000101
  2. GLUCOPHAGE [Concomitant]
  3. LANOXIN [Concomitant]
  4. COUMADIN [Concomitant]
  5. NORVASC [Concomitant]

REACTIONS (10)
  - BLOOD GLUCOSE INCREASED [None]
  - BRADYPHRENIA [None]
  - BRAIN DAMAGE [None]
  - BREAST HAEMORRHAGE [None]
  - CONVULSION [None]
  - ELECTROLYTE IMBALANCE [None]
  - HYPERSOMNIA [None]
  - HYPOREFLEXIA [None]
  - RESPIRATORY ARREST [None]
  - VOMITING [None]
